FAERS Safety Report 25535906 (Version 2)
Quarter: 2025Q3

REPORT INFORMATION
  Report Type: Report from Study
  Country: CO (occurrence: CO)
  Receive Date: 20250709
  Receipt Date: 20250808
  Transmission Date: 20251021
  Serious: Yes (Hospitalization, Other)
  Sender: TAKEDA
  Company Number: CO-TAKEDA-2025TUS061114

PATIENT
  Age: 11 Year
  Sex: Male

DRUGS (3)
  1. IMMUNINE (COAGULATION FACTOR IX HUMAN) [Suspect]
     Active Substance: COAGULATION FACTOR IX HUMAN
     Indication: Von Willebrand^s disease
  2. IMMUNINE (COAGULATION FACTOR IX HUMAN) [Suspect]
     Active Substance: COAGULATION FACTOR IX HUMAN
  3. ANTI-INHIBITOR COAGULANT COMPLEX [Suspect]
     Active Substance: ANTI-INHIBITOR COAGULANT COMPLEX
     Indication: Product used for unknown indication

REACTIONS (3)
  - Bone cyst [Recovered/Resolved]
  - Skin abrasion [Recovering/Resolving]
  - Road traffic accident [Unknown]

NARRATIVE: CASE EVENT DATE: 20190121
